FAERS Safety Report 8356024-5 (Version None)
Quarter: 2012Q2

REPORT INFORMATION
  Report Type: 
  Country: None (occurrence: None)
  Receive Date: 20120511
  Receipt Date: 20120511
  Transmission Date: 20120825
  Serious: Yes (Hospitalization)
  Sender: FDA-Public Use
  Company Number: None

PATIENT
  Age: 23 Year
  Sex: Male
  Weight: 111 kg

DRUGS (1)
  1. REMICADE [Suspect]

REACTIONS (3)
  - RESPIRATORY DISTRESS [None]
  - INJURY [None]
  - LUNG DISORDER [None]
